FAERS Safety Report 6454765-8 (Version None)
Quarter: 2009Q4

REPORT INFORMATION
  Report Type: 
  Country: None (occurrence: None)
  Receive Date: 20091118
  Receipt Date: 20091103
  Transmission Date: 20100525
  Serious: Yes (Hospitalization)
  Sender: FDA-Public Use
  Company Number: AUR-APL-2009-01211

PATIENT
  Sex: Male

DRUGS (2)
  1. AMOXICILLIN [Suspect]
  2. NIMESULIDE [Concomitant]

REACTIONS (3)
  - ERYTHEMA [None]
  - OEDEMA [None]
  - PARAESTHESIA [None]
